FAERS Safety Report 24174594 (Version 1)
Quarter: 2024Q3

REPORT INFORMATION
  Report Type: Spontaneous
  Country: US (occurrence: US)
  Receive Date: 20240805
  Receipt Date: 20240805
  Transmission Date: 20241017
  Serious: Yes (Other)
  Sender: SANDOZ
  Company Number: US-SANDOZ-SDZ2023US033921

PATIENT

DRUGS (2)
  1. BORTEZOMIB [Suspect]
     Active Substance: BORTEZOMIB
     Indication: Non-Hodgkin^s lymphoma
     Dosage: UNK
     Route: 042
  2. VORINOSTAT [Suspect]
     Active Substance: VORINOSTAT
     Indication: Non-Hodgkin^s lymphoma
     Dosage: UNK
     Route: 048
     Dates: start: 20230720

REACTIONS (28)
  - Upper respiratory tract infection [Unknown]
  - Pneumonia [Unknown]
  - Neutropenia [Unknown]
  - Thrombocytopenia [Unknown]
  - Hyperglycaemia [Unknown]
  - Neuropathy peripheral [Unknown]
  - Hypokalaemia [Unknown]
  - Otitis media [Unknown]
  - Superinfection [Unknown]
  - Tooth abscess [Unknown]
  - Urinary tract infection [Unknown]
  - Haematological infection [Unknown]
  - Hypertension [Unknown]
  - Dizziness [Unknown]
  - Diarrhoea [Unknown]
  - Gastrooesophageal reflux disease [Unknown]
  - Nausea [Unknown]
  - Abdominal discomfort [Unknown]
  - Anaemia [Unknown]
  - Lymphopenia [Unknown]
  - Fatigue [Unknown]
  - Weight increased [Unknown]
  - Blood lactate dehydrogenase increased [Unknown]
  - Protein total decreased [Unknown]
  - Blood alkaline phosphatase abnormal [Unknown]
  - Rash [Unknown]
  - Liver function test abnormal [Unknown]
  - Off label use [Unknown]
